FAERS Safety Report 25319276 (Version 1)
Quarter: 2025Q2

REPORT INFORMATION
  Report Type: Spontaneous
  Country: CN (occurrence: CN)
  Receive Date: 20250515
  Receipt Date: 20250515
  Transmission Date: 20250717
  Serious: Yes (Other)
  Sender: PFIZER
  Company Number: CN-PFIZER INC-PV202500057549

PATIENT
  Age: 22 Year
  Sex: Female
  Weight: 70 kg

DRUGS (1)
  1. CARBOPROST TROMETHAMINE [Suspect]
     Active Substance: CARBOPROST TROMETHAMINE
     Indication: Haemorrhage prophylaxis
     Dosage: 0.25 MG, 1X/DAY
     Route: 030
     Dates: start: 20250506, end: 20250506

REACTIONS (5)
  - Diarrhoea [Recovered/Resolved]
  - Vomiting [Recovering/Resolving]
  - Asthenia [Recovering/Resolving]
  - Feeding disorder [Recovering/Resolving]
  - Off label use [Unknown]

NARRATIVE: CASE EVENT DATE: 20250506
